FAERS Safety Report 4568896-0 (Version None)
Quarter: 2005Q1

REPORT INFORMATION
  Report Type: 
  Country: None (occurrence: None)
  Receive Date: 20050203
  Receipt Date: 20050121
  Transmission Date: 20050727
  Serious: Yes (Other)
  Sender: FDA-Public Use
  Company Number: CA-JNJFOC-20050106192

PATIENT
  Sex: Female

DRUGS (2)
  1. REMICADE [Suspect]
     Route: 042
  2. REMICADE [Suspect]
     Route: 042

REACTIONS (15)
  - ABDOMINAL PAIN UPPER [None]
  - ANAL FISTULA [None]
  - ARTHRITIS [None]
  - CHILLS [None]
  - COUGH [None]
  - FLANK PAIN [None]
  - HEADACHE [None]
  - INFUSION RELATED REACTION [None]
  - MYALGIA [None]
  - NAUSEA [None]
  - PAIN [None]
  - PALPITATIONS [None]
  - PRURITUS [None]
  - URTICARIA [None]
  - VISION BLURRED [None]
